FAERS Safety Report 9702510 (Version 1)
Quarter: 2013Q4

REPORT INFORMATION
  Report Type: Spontaneous
  Country: US (occurrence: US)
  Receive Date: 20131121
  Receipt Date: 20131121
  Transmission Date: 20140711
  Serious: Yes (Hospitalization)
  Sender: FDA-Public Use
  Company Number: US-ASTRAZENECA-2013SE84142

PATIENT
  Sex: Female
  Weight: 54.4 kg

DRUGS (3)
  1. BRILINTA [Suspect]
     Indication: CARDIOVASCULAR EVENT PROPHYLAXIS
     Dosage: REGULAR LOADING DOSE
     Route: 048
  2. BRILINTA [Suspect]
     Indication: CARDIOVASCULAR EVENT PROPHYLAXIS
     Route: 048
  3. PLAVIX [Concomitant]

REACTIONS (2)
  - Anxiety [Recovering/Resolving]
  - Dyspnoea [Recovering/Resolving]
